FAERS Safety Report 4499278-8 (Version None)
Quarter: 2004Q4

REPORT INFORMATION
  Report Type: 
  Country: None (occurrence: None)
  Receive Date: 20041111
  Receipt Date: 20041102
  Transmission Date: 20050328
  Serious: Yes (Death)
  Sender: FDA-Public Use
  Company Number: US-JNJFOC-20040908836

PATIENT
  Age: 61 Year
  Sex: Female

DRUGS (7)
  1. TYLENOL W/ CODEINE NO. 3 [Suspect]
     Indication: DRUG USE FOR UNKNOWN INDICATION
     Route: 049
  2. MORPHINE [Suspect]
     Indication: DRUG USE FOR UNKNOWN INDICATION
     Route: 049
  3. LORAZEPAM [Suspect]
     Indication: DRUG USE FOR UNKNOWN INDICATION
     Route: 049
  4. BACLOFEN [Suspect]
     Indication: DRUG USE FOR UNKNOWN INDICATION
  5. IBUPROFEN [Suspect]
     Indication: DRUG USE FOR UNKNOWN INDICATION
  6. ANTACID ALUMINUM MAGNESIUM HYDROXIDE [Suspect]
     Indication: DRUG USE FOR UNKNOWN INDICATION
  7. COCAINE [Suspect]
     Indication: DRUG USE FOR UNKNOWN INDICATION

REACTIONS (10)
  - APNOEA [None]
  - BLOOD PRESSURE INCREASED [None]
  - COMA [None]
  - COMPLETED SUICIDE [None]
  - HEART RATE INCREASED [None]
  - HYPOTHERMIA [None]
  - MIOSIS [None]
  - MULTIPLE DRUG OVERDOSE INTENTIONAL [None]
  - PULSE ABSENT [None]
  - RESPIRATORY RATE INCREASED [None]
